FAERS Safety Report 5879572-6 (Version None)
Quarter: 2008Q3

REPORT INFORMATION
  Report Type: 
  Country: None (occurrence: None)
  Receive Date: 20080911
  Receipt Date: 20080911
  Transmission Date: 20090109
  Serious: Yes (Other)
  Sender: FDA-Public Use
  Company Number: None

PATIENT
  Age: 61 Year
  Sex: Male
  Weight: 92.9874 kg

DRUGS (2)
  1. VYTORIN [Suspect]
     Indication: BLOOD CHOLESTEROL INCREASED
     Dosage: 1 TAB 1/DAY PO
     Route: 048
     Dates: start: 20071015, end: 20080805
  2. HYDROXYZINE HCL [Suspect]
     Indication: PRURITUS ALLERGIC
     Dosage: 1 TAB 2/DAY PO
     Route: 048
     Dates: start: 20080803, end: 20080805

REACTIONS (4)
  - ARTHRALGIA [None]
  - DECREASED ACTIVITY [None]
  - MYALGIA [None]
  - NO REACTION ON PREVIOUS EXPOSURE TO DRUG [None]
